FAERS Safety Report 24736707 (Version 1)
Quarter: 2024Q4

REPORT INFORMATION
  Report Type: Spontaneous
  Country: DE (occurrence: DE)
  Receive Date: 20241216
  Receipt Date: 20241216
  Transmission Date: 20250114
  Serious: Yes (Death, Hospitalization)
  Sender: ROCHE
  Company Number: DE-ROCHE-10000153859

PATIENT
  Sex: Male

DRUGS (2)
  1. ATEZOLIZUMAB [Suspect]
     Active Substance: ATEZOLIZUMAB
     Indication: Hepatocellular carcinoma
     Route: 065
     Dates: start: 20230203, end: 20240723
  2. BEVACIZUMAB [Suspect]
     Active Substance: BEVACIZUMAB
     Indication: Hepatocellular carcinoma
     Route: 065
     Dates: start: 20230203, end: 20240723

REACTIONS (3)
  - Death [Fatal]
  - Fluid retention [Unknown]
  - Ascites [Unknown]

NARRATIVE: CASE EVENT DATE: 20240912
